FAERS Safety Report 7064849-1 (Version None)
Quarter: 2010Q4

REPORT INFORMATION
  Report Type: 
  Country: None (occurrence: None)
  Receive Date: 20101022
  Receipt Date: 20101022
  Transmission Date: 20110411
  Serious: Yes (Hospitalization)
  Sender: FDA-Public Use
  Company Number: None

PATIENT
  Age: 63 Year
  Sex: Female
  Weight: 58.9676 kg

DRUGS (2)
  1. SORAFENIB 400 MILLIGRAM BAYER [Suspect]
     Indication: PANCREATIC CARCINOMA METASTATIC
     Dosage: 400 MILLIGRAM S TWICE DAILY PO
     Route: 048
     Dates: start: 20101001, end: 20101015
  2. EVEROLIMUS 10 MILLIGRAM NOVARTIS [Suspect]
     Indication: PANCREATIC CARCINOMA METASTATIC
     Dosage: 10 MILLIGRAMS ONCE DAILY PO
     Route: 048
     Dates: start: 20100924, end: 20101015

REACTIONS (1)
  - BILE DUCT OBSTRUCTION [None]
